FAERS Safety Report 7257406-5 (Version None)
Quarter: 2011Q1

REPORT INFORMATION
  Report Type: 
  Country: None (occurrence: None)
  Receive Date: 20110129
  Receipt Date: 20100826
  Transmission Date: 20110831
  Serious: No
  Sender: FDA-Public Use
  Company Number: US-ABBOTT-10P-163-0661658-00

PATIENT
  Sex: Female
  Weight: 136.2 kg

DRUGS (8)
  1. PROCARDIA XL [Concomitant]
  2. SYNTHROID [Concomitant]
  3. HUMIRA [Suspect]
     Route: 058
  4. ACTOS [Concomitant]
  5. FOLIC ACID [Concomitant]
  6. HUMIRA [Suspect]
     Indication: RHEUMATOID ARTHRITIS
     Dates: start: 20090101
  7. SAVELLA [Concomitant]
     Indication: FIBROMYALGIA
  8. ZANTAC [Concomitant]

REACTIONS (4)
  - INCORRECT DOSE ADMINISTERED [None]
  - INJECTION SITE URTICARIA [None]
  - DRUG INEFFECTIVE [None]
  - INJECTION SITE PAIN [None]
